FAERS Safety Report 14552967 (Version 2)
Quarter: 2018Q3

REPORT INFORMATION
  Report Type: Report from Study
  Country: FR (occurrence: FR)
  Receive Date: 20180220
  Receipt Date: 20180718
  Transmission Date: 20181010
  Serious: Yes (Hospitalization, Other)
  Sender: FDA-Public Use
  Company Number: FR-MYLANLABS-2018M1010901

PATIENT
  Age: 82 Year
  Sex: Male
  Weight: 80 kg

DRUGS (4)
  1. BRENTUXIMAB VEDOTIN [Suspect]
     Active Substance: BRENTUXIMAB VEDOTIN
     Indication: ANGIOCENTRIC LYMPHOMA
     Dosage: 145 MG, UNK
     Route: 042
     Dates: start: 20170711, end: 20171204
  2. HOLOXAN [Suspect]
     Active Substance: IFOSFAMIDE
     Indication: ANGIOCENTRIC LYMPHOMA
     Dosage: 1.8 MG/KG, UNK
     Route: 065
  3. ETOPOSIDE. [Suspect]
     Active Substance: ETOPOSIDE
     Indication: ANGIOCENTRIC LYMPHOMA
     Dosage: 1.8 MG/KG, UNK
     Route: 065
  4. BENDAMUSTINE HYDROCHLORIDE. [Suspect]
     Active Substance: BENDAMUSTINE HYDROCHLORIDE
     Indication: ANGIOCENTRIC LYMPHOMA
     Dosage: UNK
     Route: 042
     Dates: start: 20170711, end: 20170906

REACTIONS (14)
  - Neutropenia [Recovered/Resolved]
  - Pruritus generalised [Recovered/Resolved]
  - Dry skin [Unknown]
  - Off label use [Unknown]
  - Hypophosphataemia [Recovered/Resolved]
  - Electrolyte imbalance [Unknown]
  - Pyrexia [Recovered/Resolved]
  - Hypocalcaemia [Unknown]
  - Chills [Recovered/Resolved]
  - Hypersensitivity [Recovered/Resolved]
  - Lymphadenitis [Recovered/Resolved]
  - Urticaria [Recovered/Resolved]
  - Urinary retention [Recovered/Resolved]
  - Inflammation [Unknown]

NARRATIVE: CASE EVENT DATE: 2017
